FAERS Safety Report 18612347 (Version 3)
Quarter: 2021Q1

REPORT INFORMATION
  Report Type: Spontaneous
  Country: CA (occurrence: CA)
  Receive Date: 20201214
  Receipt Date: 20210318
  Transmission Date: 20210419
  Serious: Yes (Hospitalization, Other)
  Sender: FDA-Public Use
  Company Number: CA-PFIZER INC-2020362885

PATIENT
  Age: 72 Year
  Sex: Male

DRUGS (2)
  1. VYNDAQEL [Suspect]
     Active Substance: TAFAMIDIS MEGLUMINE
     Indication: CARDIAC AMYLOIDOSIS
     Dosage: 80 MG, 1X/DAY
     Route: 048
     Dates: start: 20200916, end: 202012
  2. VYNDAQEL [Suspect]
     Active Substance: TAFAMIDIS MEGLUMINE
     Dosage: 80 MG, 1X/DAY
     Route: 048
     Dates: start: 202012

REACTIONS (10)
  - Chest pain [Unknown]
  - Dysphagia [Unknown]
  - Amyloidosis [Unknown]
  - Retinal detachment [Not Recovered/Not Resolved]
  - Cystitis [Unknown]
  - Product dose omission issue [Recovering/Resolving]
  - Condition aggravated [Unknown]
  - Urinary tract infection bacterial [Not Recovered/Not Resolved]
  - Abdominal discomfort [Recovering/Resolving]
  - Dizziness [Unknown]

NARRATIVE: CASE EVENT DATE: 202009
